FAERS Safety Report 4349644-6 (Version None)
Quarter: 2004Q2

REPORT INFORMATION
  Report Type: 
  Country: None (occurrence: None)
  Receive Date: 20040427
  Receipt Date: 20031008
  Transmission Date: 20050107
  Serious: No
  Sender: FDA-Public Use
  Company Number: 000663

PATIENT
  Age: 50 Year
  Sex: Male

DRUGS (1)
  1. ZEVALIN [Suspect]
     Indication: NON-HODGKIN'S LYMPHOMA
     Dosage: 500 MG, RITUXAN DOSE 1, INTRAVENOUS
     Route: 042
     Dates: start: 20031008, end: 20031008

REACTIONS (1)
  - HYPERSENSITIVITY [None]
